FAERS Safety Report 9547001 (Version 1)
Quarter: 2013Q2

REPORT INFORMATION
  Report Type: Spontaneous
  Country: US (occurrence: None)
  Receive Date: 20130606
  Receipt Date: 20130606
  Transmission Date: 20140414
  Serious: No
  Sender: FDA-Public Use
  Company Number: 2012PROUSA02430

PATIENT
  Age: 92 Year
  Sex: Male
  Weight: 46.1 kg

DRUGS (13)
  1. PROVENGE (SIPULEUCEL-T) SUSPENSION, 250ML [Suspect]
     Indication: PROSTATE CANCER METASTATIC
     Route: 042
     Dates: start: 20121129, end: 20121129
  2. AMIOARONE HCL (AMIODARONE HYDROCHLORIDE) [Concomitant]
  3. ASPIRIN (ACETYLSALICYLIC ACID) [Concomitant]
  4. ATENOLOL (ATENOLOL) [Concomitant]
  5. DOXAZOSIN MESYLATE (DOXAZOSIN MESILATE) [Concomitant]
  6. FUROSEMIDE (FUROSEMIDE) [Concomitant]
  7. GABAPENTIN (GABAPENTIN) [Concomitant]
  8. LEVOTHROID (LEVOTHYROXINE SODIUM) [Concomitant]
  9. LISINOPRIL (LISINOPRIL) [Concomitant]
  10. MAGNESIUM OXIDE (MAGNESIUM OXIDE) [Concomitant]
  11. OMEPRAZOLE (OMEPRAZOLE) [Concomitant]
  12. POTASSIUM (POTASSIUM CHLORIDE) [Concomitant]
  13. SIMVASTATIN (SIMVASTATIN) [Concomitant]

REACTIONS (1)
  - Culture positive [None]
